FAERS Safety Report 6254143-0 (Version None)
Quarter: 2009Q3

REPORT INFORMATION
  Report Type: 
  Country: None (occurrence: None)
  Receive Date: 20090702
  Receipt Date: 20090625
  Transmission Date: 20100115
  Serious: Yes (Hospitalization)
  Sender: FDA-Public Use
  Company Number: JP-ASTRAZENECA-2009AP02869

PATIENT
  Age: 15948 Day
  Sex: Female

DRUGS (13)
  1. OMEPRAL [Suspect]
     Indication: PROPHYLAXIS AGAINST GASTROINTESTINAL ULCER
     Route: 048
     Dates: start: 20090311, end: 20090417
  2. OMEPRAL [Suspect]
     Route: 048
     Dates: start: 20090425
  3. MEROPEN [Suspect]
     Route: 041
     Dates: start: 20090323, end: 20090330
  4. MEROPEN [Suspect]
     Route: 041
     Dates: start: 20090410, end: 20090411
  5. PROCYLIN [Suspect]
     Indication: THROMBOSIS PROPHYLAXIS
     Route: 048
     Dates: start: 20090311
  6. OMEGACIN [Suspect]
     Route: 041
     Dates: start: 20090317, end: 20090323
  7. OMEGACIN [Suspect]
     Route: 041
     Dates: start: 20090408, end: 20090411
  8. CLONAZEPAM [Suspect]
     Indication: EPILEPSY
     Route: 048
     Dates: start: 20090319
  9. MEILAX [Suspect]
     Indication: ANTIDEPRESSANT THERAPY
     Route: 048
     Dates: start: 20090402
  10. FIRSTCIN [Suspect]
     Route: 041
     Dates: start: 20090406, end: 20090408
  11. BAKTAR [Suspect]
     Indication: INFECTION PROPHYLAXIS
     Route: 048
     Dates: start: 20090411, end: 20090417
  12. VANCOMYCIN [Suspect]
     Route: 041
     Dates: start: 20090409, end: 20090411
  13. TARGOCID [Suspect]
     Route: 041
     Dates: start: 20090411, end: 20090411

REACTIONS (1)
  - ERYTHEMA MULTIFORME [None]
